FAERS Safety Report 11518092 (Version 1)
Quarter: 2015Q3

REPORT INFORMATION
  Report Type: Report from Study
  Country: DE (occurrence: DE)
  Receive Date: 20150917
  Receipt Date: 20150917
  Transmission Date: 20151125
  Serious: Yes (Death)
  Sender: FDA-Public Use
  Company Number: DE-CELGENE-DEU-2015090052

PATIENT
  Sex: Female

DRUGS (1)
  1. REVLIMID [Suspect]
     Active Substance: LENALIDOMIDE
     Indication: SOFT TISSUE SARCOMA
     Dosage: 10 MILLIGRAM
     Route: 048

REACTIONS (2)
  - Death [Fatal]
  - No therapeutic response [Unknown]
